FAERS Safety Report 23931676 (Version 7)
Quarter: 2025Q3

REPORT INFORMATION
  Report Type: Spontaneous
  Country: CA (occurrence: CA)
  Receive Date: 20240603
  Receipt Date: 20250923
  Transmission Date: 20251021
  Serious: Yes (Hospitalization, Other)
  Sender: CELLTRION
  Company Number: CA-CELLTRION INC.-2024CA012675

PATIENT

DRUGS (76)
  1. YUFLYMA [Suspect]
     Active Substance: ADALIMUMAB-AATY
     Indication: Colitis ulcerative
     Route: 058
  2. YUFLYMA [Suspect]
     Active Substance: ADALIMUMAB-AATY
  3. HUMIRA [Suspect]
     Active Substance: ADALIMUMAB
     Indication: Colitis ulcerative
  4. SERTRALINE HYDROCHLORIDE [Concomitant]
     Active Substance: SERTRALINE HYDROCHLORIDE
     Dates: start: 202305, end: 202309
  5. SERTRALINE HYDROCHLORIDE [Concomitant]
     Active Substance: SERTRALINE HYDROCHLORIDE
     Dates: start: 202311
  6. VYVANSE [Concomitant]
     Active Substance: LISDEXAMFETAMINE DIMESYLATE
     Dates: start: 202309
  7. POLYETHYLENE GLYCOL 3350 [Concomitant]
     Active Substance: POLYETHYLENE GLYCOL 3350
     Dates: start: 202310
  8. METAMUCIL [Concomitant]
     Active Substance: PLANTAGO SEED
     Dates: start: 202310
  9. PREDNISONE [Concomitant]
     Active Substance: PREDNISONE
     Dates: start: 202305, end: 202309
  10. PREDNISONE [Concomitant]
     Active Substance: PREDNISONE
     Dates: start: 202402, end: 20240306
  11. PREDNISONE [Concomitant]
     Active Substance: PREDNISONE
     Dates: start: 20240307, end: 20240311
  12. PREDNISONE [Concomitant]
     Active Substance: PREDNISONE
     Dates: start: 20240312, end: 20240316
  13. PREDNISONE [Concomitant]
     Active Substance: PREDNISONE
     Dates: start: 20240317, end: 20240321
  14. PREDNISONE [Concomitant]
     Active Substance: PREDNISONE
     Dates: start: 20240322, end: 20240326
  15. PREDNISONE [Concomitant]
     Active Substance: PREDNISONE
     Dates: start: 20240327, end: 20240331
  16. PREDNISONE [Concomitant]
     Active Substance: PREDNISONE
     Dates: start: 20240401, end: 20240405
  17. PREDNISONE [Concomitant]
     Active Substance: PREDNISONE
     Dates: start: 20240409, end: 20240416
  18. PREDNISONE [Concomitant]
     Active Substance: PREDNISONE
     Dates: start: 20240416, end: 20240423
  19. PREDNISONE [Concomitant]
     Active Substance: PREDNISONE
     Dates: start: 20240423, end: 20240430
  20. PREDNISONE [Concomitant]
     Active Substance: PREDNISONE
     Dates: start: 202404
  21. PREDNISONE [Concomitant]
     Active Substance: PREDNISONE
  22. PREDNISONE [Concomitant]
     Active Substance: PREDNISONE
  23. PREDNISONE [Concomitant]
     Active Substance: PREDNISONE
  24. BETADERM [Concomitant]
     Active Substance: BETAMETHASONE VALERATE
     Dates: start: 20240501
  25. HYDROMORPHONE HYDROCHLORIDE [Concomitant]
     Active Substance: HYDROMORPHONE HYDROCHLORIDE
     Dates: start: 20240501, end: 20240508
  26. GRAVOL [Concomitant]
     Active Substance: DIMENHYDRINATE
     Dates: start: 202405, end: 202405
  27. GRAVOL [Concomitant]
     Active Substance: DIMENHYDRINATE
  28. GRAVOL [Concomitant]
     Active Substance: DIMENHYDRINATE
  29. CEFAZOLIN [Concomitant]
     Active Substance: CEFAZOLIN
     Dates: start: 202404, end: 20240508
  30. CEFAZOLIN [Concomitant]
     Active Substance: CEFAZOLIN
     Dates: start: 20240427, end: 202405
  31. ENOXAPARIN [Concomitant]
     Active Substance: ENOXAPARIN
     Dates: start: 20240215, end: 20240305
  32. ENOXAPARIN [Concomitant]
     Active Substance: ENOXAPARIN
     Dates: start: 20240322, end: 20240403
  33. ENOXAPARIN [Concomitant]
     Active Substance: ENOXAPARIN
     Dates: start: 202406, end: 202406
  34. ENOXAPARIN [Concomitant]
     Active Substance: ENOXAPARIN
  35. ENOXAPARIN [Concomitant]
     Active Substance: ENOXAPARIN
  36. VANCOMYCIN [Concomitant]
     Active Substance: VANCOMYCIN
     Dates: start: 202403, end: 20240406
  37. VANCOMYCIN [Concomitant]
     Active Substance: VANCOMYCIN
     Dates: start: 20240406, end: 20240413
  38. VANCOMYCIN [Concomitant]
     Active Substance: VANCOMYCIN
     Dates: start: 20240413, end: 20240420
  39. VANCOMYCIN [Concomitant]
     Active Substance: VANCOMYCIN
     Dates: start: 20240420, end: 20240504
  40. VANCOMYCIN [Concomitant]
     Active Substance: VANCOMYCIN
     Dates: start: 20240508
  41. VANCOMYCIN [Concomitant]
     Active Substance: VANCOMYCIN
  42. VANCOMYCIN [Concomitant]
     Active Substance: VANCOMYCIN
  43. ONDANSETRON IV [Concomitant]
     Dates: start: 202404, end: 202405
  44. ONDANSETRON REGULAR RELEASE [Concomitant]
     Dates: start: 202404, end: 202405
  45. MIDAZOLAM [Concomitant]
     Active Substance: MIDAZOLAM
     Dates: start: 20240226, end: 20240226
  46. MIDAZOLAM [Concomitant]
     Active Substance: MIDAZOLAM
     Dates: start: 20240229, end: 20240229
  47. MIDAZOLAM [Concomitant]
     Active Substance: MIDAZOLAM
     Dates: start: 20240327, end: 20240327
  48. MIDAZOLAM [Concomitant]
     Active Substance: MIDAZOLAM
     Dates: start: 20240621, end: 20240621
  49. FENTANYL [Concomitant]
     Active Substance: FENTANYL
     Dates: start: 20240226, end: 20240226
  50. FENTANYL [Concomitant]
     Active Substance: FENTANYL
     Dates: start: 20240229, end: 20240229
  51. FENTANYL [Concomitant]
     Active Substance: FENTANYL
     Dates: start: 20240327, end: 20240327
  52. FENTANYL [Concomitant]
     Active Substance: FENTANYL
     Dates: start: 20240621, end: 20240621
  53. FENTANYL [Concomitant]
     Active Substance: FENTANYL
  54. FENTANYL [Concomitant]
     Active Substance: FENTANYL
  55. POLYETHYLENE GLYCOL 3350\POTASSIUM CHLORIDE\SODIUM BICARBONATE\SODIUM [Concomitant]
     Active Substance: POLYETHYLENE GLYCOL 3350\POTASSIUM CHLORIDE\SODIUM BICARBONATE\SODIUM CHLORIDE\SODIUM SULFATE
     Dates: start: 20240228, end: 20240229
  56. CEFADROXIL [Concomitant]
     Active Substance: CEFADROXIL
     Dates: start: 20240305, end: 20240308
  57. PREGABALIN [Concomitant]
     Active Substance: PREGABALIN
     Dates: start: 20240305, end: 20240318
  58. BUTYLSCOPOLAMINE BROMIDE [Concomitant]
     Active Substance: BUTYLSCOPOLAMINE BROMIDE
     Dates: start: 20240403
  59. ZOFRAN [Concomitant]
     Active Substance: ONDANSETRON HYDROCHLORIDE
     Dates: start: 202404, end: 202405
  60. RINGERS LACTATE [CALCIUM CHLORIDE;POTASSIUM CHLORIDE;SODIUM CHLORIDE;S [Concomitant]
     Dates: start: 202404, end: 202405
  61. RINGERS LACTATE [CALCIUM CHLORIDE;POTASSIUM CHLORIDE;SODIUM CHLORIDE;S [Concomitant]
     Dates: start: 202406, end: 202406
  62. HYDROMORPHONE [Concomitant]
     Active Substance: HYDROMORPHONE
     Dates: start: 20240305, end: 202403
  63. HYDROMORPHONE [Concomitant]
     Active Substance: HYDROMORPHONE
     Dates: start: 202403, end: 202403
  64. HYDROMORPHONE [Concomitant]
     Active Substance: HYDROMORPHONE
     Dates: start: 202404, end: 202404
  65. HYDROMORPHONE [Concomitant]
     Active Substance: HYDROMORPHONE
  66. HYDROMORPHONE [Concomitant]
     Active Substance: HYDROMORPHONE
  67. ZOPICLONE [Concomitant]
     Active Substance: ZOPICLONE
     Dates: start: 202402, end: 202405
  68. SULFATRIM [Concomitant]
     Active Substance: SULFAMETHOXAZOLE\TRIMETHOPRIM
     Dates: start: 20240508
  69. NALOXONE [Concomitant]
     Active Substance: NALOXONE
     Dates: start: 20240613, end: 20240613
  70. OXYCODONE [Concomitant]
     Active Substance: OXYCODONE
     Dates: start: 202406
  71. PEG 3350 [Concomitant]
     Active Substance: POLYETHYLENE GLYCOL 3350
     Dates: start: 202406, end: 202406
  72. SENNOSIDES [Concomitant]
     Active Substance: SENNOSIDES
     Dates: start: 202406, end: 202406
  73. HYDROMORPHONE HYDROCHLORIDE [Concomitant]
     Active Substance: HYDROMORPHONE HYDROCHLORIDE
  74. POLYETHYLENE GLYCOL 3350\POTASSIUM CHLORIDE\SODIUM BICARBONATE\SODIUM [Concomitant]
     Active Substance: POLYETHYLENE GLYCOL 3350\POTASSIUM CHLORIDE\SODIUM BICARBONATE\SODIUM CHLORIDE\SODIUM SULFATE
  75. POLYETHYLENE GLYCOL 3350\POTASSIUM CHLORIDE\SODIUM BICARBONATE\SODIUM [Concomitant]
     Active Substance: POLYETHYLENE GLYCOL 3350\POTASSIUM CHLORIDE\SODIUM BICARBONATE\SODIUM CHLORIDE\SODIUM SULFATE
  76. HYDROMORPHONE HYDROCHLORIDE [Concomitant]
     Active Substance: HYDROMORPHONE HYDROCHLORIDE

REACTIONS (10)
  - Superficial vein thrombosis [Not Recovered/Not Resolved]
  - Urinary retention [Not Recovered/Not Resolved]
  - Polyuria [Not Recovered/Not Resolved]
  - Ileus [Not Recovered/Not Resolved]
  - Diarrhoea [Not Recovered/Not Resolved]
  - Staphylococcal bacteraemia [Not Recovered/Not Resolved]
  - Cellulitis [Not Recovered/Not Resolved]
  - Clostridium difficile colitis [Not Recovered/Not Resolved]
  - COVID-19 [Not Recovered/Not Resolved]
  - Drug ineffective [Not Recovered/Not Resolved]

NARRATIVE: CASE EVENT DATE: 20240201
